FAERS Safety Report 5308135-6 (Version None)
Quarter: 2007Q2

REPORT INFORMATION
  Report Type: 
  Country: None (occurrence: None)
  Receive Date: 20070426
  Receipt Date: 20070416
  Transmission Date: 20071010
  Serious: Yes (Other)
  Sender: FDA-Public Use
  Company Number: PHEH2007US05605

PATIENT
  Age: 49 Year
  Sex: Female
  Weight: 57.142 kg

DRUGS (9)
  1. PREMPHASE 14/14 [Suspect]
     Indication: MENOPAUSAL SYMPTOMS
     Route: 048
     Dates: start: 19970513, end: 19971216
  2. ESTROGENS CONJUGATED W/MEDROXYPROGESTERONE [Suspect]
     Indication: MENOPAUSAL SYMPTOMS
  3. ESTRADIOL [Suspect]
     Dates: start: 19980101
  4. SYNTHROID [Concomitant]
  5. IMITREX [Concomitant]
     Dosage: 50 MG, UNK
  6. ESTRADERM [Suspect]
     Indication: MENOPAUSAL SYMPTOMS
     Dosage: 0.5 MG, UNK
     Route: 061
     Dates: start: 19890621, end: 19910201
  7. PREMPRO [Suspect]
     Indication: MENOPAUSAL SYMPTOMS
     Route: 048
     Dates: start: 19950714, end: 19970401
  8. PROVERA [Suspect]
     Indication: MENOPAUSAL SYMPTOMS
     Dosage: 10 MG, UNK
     Route: 048
     Dates: start: 19880326, end: 19950901
  9. PREMARIN [Suspect]
     Indication: MENOPAUSAL SYMPTOMS
     Dosage: 0.625/1.25 MG
     Route: 048
     Dates: start: 19850824, end: 19950901

REACTIONS (23)
  - BONE DENSITY DECREASED [None]
  - BREAST CANCER IN SITU [None]
  - BREAST CYST [None]
  - BREAST MASS [None]
  - BREAST OEDEMA [None]
  - BREAST TENDERNESS [None]
  - CANCER GENE CARRIER [None]
  - EMOTIONAL DISTRESS [None]
  - EXOSTOSIS [None]
  - FALL [None]
  - FIBROADENOMA OF BREAST [None]
  - FIBROCYSTIC BREAST DISEASE [None]
  - HOT FLUSH [None]
  - HYPERTONIC BLADDER [None]
  - HYPOAESTHESIA [None]
  - LIGAMENT RUPTURE [None]
  - LYMPHADENECTOMY [None]
  - OSTEOPENIA [None]
  - PAIN IN EXTREMITY [None]
  - PARAESTHESIA [None]
  - RADIOTHERAPY [None]
  - SKIN IRRITATION [None]
  - VULVOVAGINAL DRYNESS [None]
